FAERS Safety Report 6298983-0 (Version None)
Quarter: 2009Q3

REPORT INFORMATION
  Report Type: 
  Country: None (occurrence: None)
  Receive Date: 20090806
  Receipt Date: 20090730
  Transmission Date: 20100115
  Serious: Yes (Life-Threatening, Other)
  Sender: FDA-Public Use
  Company Number: US-BAYER-200928685NA

PATIENT
  Age: 17 Year
  Sex: Female

DRUGS (1)
  1. YASMIN [Suspect]
     Indication: CONTRACEPTION

REACTIONS (2)
  - DEEP VEIN THROMBOSIS [None]
  - PAIN [None]
